FAERS Safety Report 8559011-7 (Version None)
Quarter: 2012Q3

REPORT INFORMATION
  Report Type: 
  Country: None (occurrence: None)
  Receive Date: 20120802
  Receipt Date: 20120724
  Transmission Date: 20120928
  Serious: Yes (Other)
  Sender: FDA-Public Use
  Company Number: US-BIOGENIDEC-2011BI014885

PATIENT
  Sex: Female

DRUGS (2)
  1. AVONEX [Suspect]
     Indication: MULTIPLE SCLEROSIS
     Route: 030
     Dates: start: 20101014
  2. BETASERON [Concomitant]

REACTIONS (5)
  - FALL [None]
  - PYREXIA [None]
  - LYMPHOMA [None]
  - INJECTION SITE REACTION [None]
  - CHILLS [None]
